FAERS Safety Report 15855524 (Version 2)
Quarter: 2019Q1

REPORT INFORMATION
  Report Type: Spontaneous
  Country: US (occurrence: US)
  Receive Date: 20190122
  Receipt Date: 20190207
  Transmission Date: 20190417
  Serious: Yes (Hospitalization)
  Sender: FDA-Public Use
  Company Number: US-VERTEX PHARMACEUTICALS-2019-000449

PATIENT
  Age: 7 Year
  Sex: Male

DRUGS (19)
  1. MUPIROCIN. [Concomitant]
     Active Substance: MUPIROCIN
  2. IPRATROPIUM [Concomitant]
     Active Substance: IPRATROPIUM
  3. MELATONIN [Concomitant]
     Active Substance: MELATONIN
     Dosage: 5 MG
  4. ALBUTEROL                          /00139501/ [Concomitant]
     Active Substance: ALBUTEROL
  5. ERYTHROMYCIN. [Concomitant]
     Active Substance: ERYTHROMYCIN
  6. CEFDINIR. [Concomitant]
     Active Substance: CEFDINIR
     Dosage: 250 MILLILITER
  7. DEXMETHYLPHEN HYDROCHLORIDE [Concomitant]
     Dosage: 20 MG ER CAPSULE
  8. PEDIASURE                          /07459601/ [Concomitant]
  9. KALYDECO [Suspect]
     Active Substance: IVACAFTOR
     Indication: CYSTIC FIBROSIS
     Dosage: 150 MG, BID
     Route: 048
     Dates: start: 20180123
  10. DEXMETHYLPHEN HYDROCHLORIDE [Concomitant]
     Dosage: 15 MG ER CAPSULE
  11. GUANFACINE. [Concomitant]
     Active Substance: GUANFACINE
  12. SILAPAP [Concomitant]
     Active Substance: ACETAMINOPHEN
     Dosage: 160/5 MG/ML
  13. MONTELUKAST [Concomitant]
     Active Substance: MONTELUKAST SODIUM
     Dosage: 5 MG
  14. CLOTRIMAZOLE. [Concomitant]
     Active Substance: CLOTRIMAZOLE
     Dosage: 10 MG
  15. CREON [Concomitant]
     Active Substance: PANCRELIPASE AMYLASE\PANCRELIPASE LIPASE\PANCRELIPASE PROTEASE
     Dosage: 6000 UNITS
  16. CIPROFLOXACIN. [Concomitant]
     Active Substance: CIPROFLOXACIN
     Dosage: 500 MG
  17. CIPRO [Concomitant]
     Active Substance: CIPROFLOXACIN HYDROCHLORIDE
  18. FLOVENT HFA [Concomitant]
     Active Substance: FLUTICASONE PROPIONATE
  19. CETRIZINE [Concomitant]
     Active Substance: CETIRIZINE HYDROCHLORIDE
     Dosage: 10 MG

REACTIONS (3)
  - Infective pulmonary exacerbation of cystic fibrosis [Recovering/Resolving]
  - Pneumonia [Recovering/Resolving]
  - Otitis media [Recovering/Resolving]

NARRATIVE: CASE EVENT DATE: 201812
